FAERS Safety Report 8834528 (Version 3)
Quarter: 2013Q1

REPORT INFORMATION
  Report Type: Report from Study
  Country: US (occurrence: US)
  Receive Date: 20121010
  Receipt Date: 20130115
  Transmission Date: 20140127
  Serious: Yes (Death, Life-Threatening, Hospitalization)
  Sender: FDA-Public Use
  Company Number: US-PFIZER INC-2012236523

PATIENT
  Age: 50 Year
  Sex: Female
  Weight: 53.7 kg

DRUGS (16)
  1. DACOMITINIB [Suspect]
     Indication: NON-SMALL CELL LUNG CANCER
     Dosage: 45 MG, DAILY
     Route: 048
     Dates: start: 20120726, end: 20120922
  2. PLACEBO [Suspect]
     Indication: NON-SMALL CELL LUNG CANCER
     Dosage: 200 MG, 2X/DAY
     Route: 048
     Dates: start: 20120726, end: 20120822
  3. MORPHINE SULFATE [Suspect]
     Indication: PAIN
     Dosage: 30 MG, Q12H
     Route: 048
     Dates: start: 20120327
  4. PRAZOSIN HYDROCHLORIDE [Suspect]
     Indication: HYPERTENSION
     Dosage: 1 MG, QD
     Route: 048
     Dates: start: 20120810
  5. OXYCODONE [Suspect]
     Indication: PAIN
     Dosage: 60 MG, Q8H
     Route: 048
     Dates: start: 20120810
  6. CYMBALTA [Suspect]
     Indication: BIPOLAR DISORDER
     Dosage: 120 MG, QD
     Route: 048
     Dates: start: 20120327
  7. WELLBUTRIN [Suspect]
     Indication: BIPOLAR DISORDER
     Dosage: 300 MG,QD
     Route: 048
     Dates: start: 20120327
  8. ZYPREXA [Suspect]
     Indication: BIPOLAR DISORDER
     Dosage: 7.5 20 MG QD
     Route: 048
     Dates: start: 20120327
  9. TOPAMAX [Suspect]
     Indication: BIPOLAR DISORDER
     Dosage: 50 MG, QD
     Route: 048
     Dates: start: 20120329
  10. CLONAZEPAM [Suspect]
     Indication: BIPOLAR DISORDER
     Dosage: 0.5 MG, QD
     Route: 048
     Dates: start: 20120327
  11. PERCOCET [Suspect]
     Indication: BIPOLAR DISORDER
     Dosage: 5-325 MG, Q6H
     Route: 048
     Dates: start: 20120327
  12. OXYCONTIN [Suspect]
     Indication: PAIN
     Dosage: 10 MG, Q6H
     Route: 048
     Dates: start: 20120810
  13. IRON [Concomitant]
     Indication: PROPHYLAXIS
     Dosage: UNK
  14. VITAMIN B12 [Concomitant]
     Indication: PROPHYLAXIS
     Dosage: UNK
  15. CALCIUM CITRATE [Concomitant]
     Indication: PROPHYLAXIS
     Dosage: UNK
  16. FOLIC ACID [Concomitant]
     Indication: PROPHYLAXIS
     Dosage: UNK

REACTIONS (2)
  - Gastrointestinal haemorrhage [Fatal]
  - Hypovolaemic shock [Fatal]
